FAERS Safety Report 7864826-4 (Version None)
Quarter: 2011Q4

REPORT INFORMATION
  Report Type: 
  Country: None (occurrence: None)
  Receive Date: 20111028
  Receipt Date: 20101222
  Transmission Date: 20120403
  Serious: No
  Sender: FDA-Public Use
  Company Number: US-GLAXOSMITHKLINE-A0876982A

PATIENT
  Age: 65 Year
  Sex: Female

DRUGS (4)
  1. SPIRONOLACTONE [Concomitant]
  2. RESCUE REMEDY [Concomitant]
     Route: 055
  3. LASIX [Concomitant]
  4. ADVAIR DISKUS 100/50 [Suspect]
     Indication: CHRONIC OBSTRUCTIVE PULMONARY DISEASE
     Dosage: 1PUFF TWICE PER DAY
     Route: 055

REACTIONS (1)
  - WEIGHT INCREASED [None]
